FAERS Safety Report 17871453 (Version 2)
Quarter: 2020Q3

REPORT INFORMATION
  Report Type: Spontaneous
  Country: US (occurrence: US)
  Receive Date: 20200608
  Receipt Date: 20200715
  Transmission Date: 20201103
  Serious: Yes (Other)
  Sender: FDA-Public Use
  Company Number: US-ASTRAZENECA-2020SE72089

PATIENT
  Age: 634 Month
  Sex: Male
  Weight: 77.1 kg

DRUGS (9)
  1. SYMBICORT [Suspect]
     Active Substance: BUDESONIDE\FORMOTEROL FUMARATE DIHYDRATE
     Indication: EMPHYSEMA
     Dosage: 160/4.5 MCG 120 INHALATIONS 1 PUFF IN THE MORNING AND 1 AT NIGHT (TWO TIMES A DAY)
     Route: 055
     Dates: start: 202001
  2. SIMVASTATIN. [Concomitant]
     Active Substance: SIMVASTATIN
  3. POTASSIUM CITRATE. [Concomitant]
     Active Substance: POTASSIUM CITRATE
  4. EQUATE ASPIRIN [Concomitant]
     Active Substance: ASPIRIN
  5. SYMBICORT [Suspect]
     Active Substance: BUDESONIDE\FORMOTEROL FUMARATE DIHYDRATE
     Indication: ASTHMA
     Dosage: 160/4.5 MCG 120 INHALATIONS 1 PUFF IN THE MORNING AND 1 AT NIGHT (TWO TIMES A DAY)
     Route: 055
     Dates: start: 202001
  6. ADVAIR DISKUS [Concomitant]
     Active Substance: FLUTICASONE PROPIONATE\SALMETEROL XINAFOATE
     Indication: ASTHMA
  7. METFORMIN [Concomitant]
     Active Substance: METFORMIN HYDROCHLORIDE
     Dosage: TWO 500 MG TABLETS IN THE MORNING AND 2 500 MG TABLETS AT NIGHT
  8. LANTUS [Concomitant]
     Active Substance: INSULIN GLARGINE
     Dosage: 24 UNITS A DAY
  9. MELANTONIN [Concomitant]
     Indication: SLEEP DISORDER THERAPY

REACTIONS (5)
  - Drug delivery system issue [Unknown]
  - Intentional device misuse [Unknown]
  - Dyspnoea [Unknown]
  - Device issue [Unknown]
  - Wrong technique in device usage process [Unknown]

NARRATIVE: CASE EVENT DATE: 202001
